FAERS Safety Report 19273218 (Version 3)
Quarter: 2021Q2

REPORT INFORMATION
  Report Type: Report from Study
  Country: None (occurrence: IN)
  Receive Date: 20210518
  Receipt Date: 20210608
  Transmission Date: 20210717
  Serious: Yes (Death)
  Sender: FDA-Public Use
  Company Number: IN-ABBVIE-21P-078-3910182-00

PATIENT
  Age: 6 Year
  Sex: Female

DRUGS (1)
  1. CREON [Suspect]
     Active Substance: PANCRELIPASE AMYLASE\PANCRELIPASE LIPASE\PANCRELIPASE PROTEASE
     Indication: PANCREATITIS ACUTE
     Dosage: 4 DOSES PER DAY, CREON 10K
     Route: 048
     Dates: start: 202102, end: 20210421

REACTIONS (4)
  - Peripheral swelling [Fatal]
  - Abdominal distension [Fatal]
  - Anuria [Fatal]
  - Constipation [Fatal]

NARRATIVE: CASE EVENT DATE: 20210421
